FAERS Safety Report 11568167 (Version 1)
Quarter: 2015Q3

REPORT INFORMATION
  Report Type: Spontaneous
  Country: US (occurrence: None)
  Receive Date: 20150925
  Receipt Date: 20150925
  Transmission Date: 20151125
  Serious: Yes (Hospitalization, Other)
  Sender: FDA-Public Use
  Company Number: US-ZYDUS-009032

PATIENT
  Age: 82 Year
  Sex: Female

DRUGS (1)
  1. METFORMIN [Suspect]
     Active Substance: METFORMIN HYDROCHLORIDE
     Indication: PRODUCT USED FOR UNKNOWN INDICATION

REACTIONS (10)
  - Bradycardia [None]
  - Hyperkalaemia [None]
  - Vomiting [None]
  - Fatigue [None]
  - Toxicity to various agents [None]
  - Hypotension [None]
  - Diarrhoea [None]
  - Hypothermia [None]
  - Lactic acidosis [None]
  - Haemodialysis [None]
